FAERS Safety Report 8935502 (Version 1)
Quarter: 2012Q4

REPORT INFORMATION
  Report Type: Spontaneous
  Country: US (occurrence: None)
  Receive Date: 20121128
  Receipt Date: 20121128
  Transmission Date: 20130627
  Serious: Yes (Other)
  Sender: FDA-Public Use
  Company Number: None

PATIENT
  Age: 65 Year
  Sex: Male

DRUGS (1)
  1. LUPRON DEPOT [Suspect]
     Dates: start: 20121120, end: 20121120

REACTIONS (2)
  - Injection site pain [None]
  - Dysstasia [None]
